FAERS Safety Report 26079943 (Version 1)
Quarter: 2025Q4

REPORT INFORMATION
  Report Type: Report from Study
  Country: EU (occurrence: EU)
  Receive Date: 20251123
  Receipt Date: 20251123
  Transmission Date: 20260118
  Serious: Yes (Hospitalization)
  Sender: ABBVIE
  Company Number: EU-JNJFOC-20251154450

PATIENT
  Age: 52 Year
  Sex: Male
  Weight: 104 kg

DRUGS (12)
  1. ATOGEPANT [Suspect]
     Active Substance: ATOGEPANT
     Indication: Migraine prophylaxis
     Route: 048
     Dates: start: 20250409, end: 20251026
  2. ATOGEPANT [Suspect]
     Active Substance: ATOGEPANT
     Indication: Migraine prophylaxis
     Route: 048
     Dates: start: 20241022, end: 20241122
  3. NAPROXEN [Concomitant]
     Active Substance: NAPROXEN
     Indication: Migraine
     Dosage: AS NECESSARY
     Dates: start: 20240131
  4. ELETRIPTAN [Concomitant]
     Active Substance: ELETRIPTAN
     Indication: Migraine
     Dosage: AS NECESSARY
     Dates: start: 20250211, end: 20251011
  5. ESOMEPRAZOLE [Concomitant]
     Active Substance: ESOMEPRAZOLE
     Indication: Gastritis prophylaxis
     Dosage: AS NECESSARY
     Dates: start: 20241022
  6. RIZATRIPTAN [Concomitant]
     Active Substance: RIZATRIPTAN
     Indication: Migraine
     Dosage: AS NECESSARY
     Dates: start: 2016, end: 20250211
  7. TOPIRAMATE [Suspect]
     Active Substance: TOPIRAMATE
     Indication: Migraine prophylaxis
     Route: 048
     Dates: start: 20241022, end: 20241028
  8. TOPIRAMATE [Suspect]
     Active Substance: TOPIRAMATE
     Indication: Migraine prophylaxis
     Route: 048
     Dates: start: 20241112, end: 20241121
  9. TOPIRAMATE [Suspect]
     Active Substance: TOPIRAMATE
     Indication: Migraine prophylaxis
     Route: 048
     Dates: start: 20241105, end: 20241111
  10. TOPIRAMATE [Suspect]
     Active Substance: TOPIRAMATE
     Indication: Migraine prophylaxis
     Route: 048
     Dates: start: 20241029, end: 20241104
  11. TOPIRAMATE [Suspect]
     Active Substance: TOPIRAMATE
     Indication: Migraine prophylaxis
     Route: 048
     Dates: start: 20241122, end: 20241122
  12. BISACODYL [Concomitant]
     Active Substance: BISACODYL
     Indication: Constipation
     Dosage: AS NECESSARY
     Dates: start: 20250502

REACTIONS (1)
  - Hemihypoaesthesia [Not Recovered/Not Resolved]

NARRATIVE: CASE EVENT DATE: 20251009
